FAERS Safety Report 7831481-9 (Version None)
Quarter: 2011Q4

REPORT INFORMATION
  Report Type: 
  Country: None (occurrence: None)
  Receive Date: 20111021
  Receipt Date: 20111021
  Transmission Date: 20120403
  Serious: Yes (Hospitalization, Other)
  Sender: FDA-Public Use
  Company Number: None

PATIENT
  Age: 39 Year
  Sex: Female
  Weight: 77.11 kg

DRUGS (1)
  1. GENTAMICIN [Suspect]
     Indication: ESCHERICHIA INFECTION
     Dosage: DRIP FOR AN HOUR UNKNOWN DOSE
     Route: 041
     Dates: start: 20110629, end: 20110709

REACTIONS (12)
  - SPEECH DISORDER [None]
  - VISION BLURRED [None]
  - GAIT DISTURBANCE [None]
  - IMPAIRED WORK ABILITY [None]
  - VESTIBULAR DISORDER [None]
  - VERTIGO [None]
  - IMPAIRED DRIVING ABILITY [None]
  - TOXICITY TO VARIOUS AGENTS [None]
  - MIGRAINE [None]
  - ACTIVITIES OF DAILY LIVING IMPAIRED [None]
  - DIZZINESS [None]
  - INNER EAR DISORDER [None]
